FAERS Safety Report 7372919-3 (Version None)
Quarter: 2011Q1

REPORT INFORMATION
  Report Type: 
  Country: None (occurrence: None)
  Receive Date: 20110324
  Receipt Date: 20110322
  Transmission Date: 20110831
  Serious: Yes (Death, Other)
  Sender: FDA-Public Use
  Company Number: GB-PFIZER INC-2011063800

PATIENT
  Age: 53 Year
  Sex: Male
  Weight: 55 kg

DRUGS (11)
  1. PARACETAMOL [Suspect]
     Dosage: 1 DF, UNK
     Route: 042
  2. CHLORDIAZEPOXIDE [Concomitant]
  3. PARACETAMOL [Suspect]
     Dosage: 1 G, 4X/DAY
     Route: 048
  4. OMEPRAZOLE [Concomitant]
  5. ACETAMINOPHEN AND CODEINE PHOSPHATE [Concomitant]
  6. TERLIPRESSIN [Concomitant]
  7. TAZOCIN [Suspect]
     Dosage: 4.5 G, 3X/DAY
  8. THIAMINE [Concomitant]
  9. ZOPICLONE [Concomitant]
  10. ACAMPROSATE [Concomitant]
  11. PABRINEX [Concomitant]

REACTIONS (4)
  - HYPOTENSION [None]
  - TOXICITY TO VARIOUS AGENTS [None]
  - MULTI-ORGAN FAILURE [None]
  - HEPATIC FAILURE [None]
